FAERS Safety Report 9168450 (Version 5)
Quarter: 2013Q4

REPORT INFORMATION
  Report Type: Report from Study
  Country: US (occurrence: US)
  Receive Date: 20130318
  Receipt Date: 20131226
  Transmission Date: 20140711
  Serious: Yes (Other)
  Sender: FDA-Public Use
  Company Number: PHEH2012US020347

PATIENT
  Sex: Female

DRUGS (3)
  1. GILENYA (FINGOLIMOD) CAPSULE, 0.5MG [Suspect]
     Indication: MULTIPLE SCLEROSIS
     Dosage: 0.5 MG, QD
     Route: 048
     Dates: start: 201208, end: 201212
  2. SINGULAIR (MONTELUKAST SODIUM) TABLET [Concomitant]
     Dosage: UNK UKN, UNK
  3. CELLCEPT (MYCOPHENOLATE MOFETIL) TABLET [Concomitant]
     Dosage: UNK UKN, UNK

REACTIONS (28)
  - Cardiac failure [Unknown]
  - Atrial fibrillation [Unknown]
  - Heart rate increased [Unknown]
  - JC virus infection [Unknown]
  - Wheezing [Not Recovered/Not Resolved]
  - Cough [Not Recovered/Not Resolved]
  - Sneezing [Not Recovered/Not Resolved]
  - Sinus disorder [Unknown]
  - Musculoskeletal stiffness [Unknown]
  - Balance disorder [Unknown]
  - Rash [Unknown]
  - Fatigue [Unknown]
  - Arthralgia [Unknown]
  - Pyrexia [Not Recovered/Not Resolved]
  - Malaise [Unknown]
  - Pain in extremity [Unknown]
  - Abdominal discomfort [Unknown]
  - Pain [Unknown]
  - Chills [Unknown]
  - Extrasystoles [Unknown]
  - Gait disturbance [Unknown]
  - Heart rate irregular [Unknown]
  - Headache [Unknown]
  - Blood pressure increased [Unknown]
  - Infection [Unknown]
  - Seasonal allergy [None]
  - Musculoskeletal stiffness [None]
  - Balance disorder [None]
